FAERS Safety Report 8177247-4 (Version None)
Quarter: 2012Q1

REPORT INFORMATION
  Report Type: 
  Country: None (occurrence: None)
  Receive Date: 20120124
  Receipt Date: 20111017
  Transmission Date: 20120608
  Serious: No
  Sender: FDA-Public Use
  Company Number: US-006576

PATIENT
  Age: 81 Year
  Sex: Male
  Weight: 61.2356 kg

DRUGS (4)
  1. CALCIUM WITH VITAMIN D [Concomitant]
  2. ASPIRIN [Concomitant]
  3. FIRMAGON [Suspect]
     Indication: PROSTATE CANCER
     Dosage: (240 MG TOTAL SUBCUTANEOUS)
     Route: 058
     Dates: start: 20111008
  4. DAILY VITAMINS [Concomitant]

REACTIONS (1)
  - HAEMATURIA [None]
